FAERS Safety Report 11047323 (Version 1)
Quarter: 2015Q2

REPORT INFORMATION
  Report Type: Spontaneous
  Country: IE (occurrence: IE)
  Receive Date: 20150420
  Receipt Date: 20150420
  Transmission Date: 20150821
  Serious: Yes (Other)
  Sender: FDA-Public Use
  Company Number: IE-JNJFOC-20150113554

PATIENT
  Age: 83 Year
  Sex: Female

DRUGS (7)
  1. ONE ALPHA [Concomitant]
     Active Substance: ALFACALCIDOL
     Route: 065
  2. ASPIRIN. [Concomitant]
     Active Substance: ASPIRIN
     Route: 065
  3. PANTOPRAZOLE [Concomitant]
     Active Substance: PANTOPRAZOLE SODIUM
     Route: 065
  4. VALSARTAN. [Concomitant]
     Active Substance: VALSARTAN
     Route: 065
  5. STELARA [Suspect]
     Active Substance: USTEKINUMAB
     Indication: VASCULITIS
     Dosage: FOR 0,4 WEEKS AND EVERY 12 WEEKS THEREAFTER
     Route: 058
     Dates: start: 20150120
  6. CENTYL K [Concomitant]
     Route: 065
  7. DELTACORTRIL [Concomitant]
     Active Substance: PREDNISOLONE
     Route: 065

REACTIONS (3)
  - Vomiting [Unknown]
  - Product use issue [Unknown]
  - Kidney infection [Unknown]

NARRATIVE: CASE EVENT DATE: 20150120
